FAERS Safety Report 6036639-X (Version None)
Quarter: 2009Q1

REPORT INFORMATION
  Report Type: 
  Country: None (occurrence: None)
  Receive Date: 20090114
  Receipt Date: 20081215
  Transmission Date: 20090719
  Serious: No
  Sender: FDA-Public Use
  Company Number: US-BAYER-200812033NA

PATIENT
  Age: 30 Year
  Sex: Female
  Weight: 59 kg

DRUGS (1)
  1. MIRENA [Suspect]
     Indication: CONTRACEPTION
     Route: 015
     Dates: start: 20071211

REACTIONS (7)
  - BREAST TENDERNESS [None]
  - FATIGUE [None]
  - HUNGER [None]
  - MENSTRUATION DELAYED [None]
  - POST PROCEDURAL HAEMORRHAGE [None]
  - PREGNANCY [None]
  - PREGNANCY TEST POSITIVE [None]
